FAERS Safety Report 7737525-7 (Version None)
Quarter: 2011Q3

REPORT INFORMATION
  Report Type: 
  Country: None (occurrence: None)
  Receive Date: 20110908
  Receipt Date: 20110901
  Transmission Date: 20111222
  Serious: Yes (Life-Threatening, Other)
  Sender: FDA-Public Use
  Company Number: BR-US-EMD SERONO, INC.-7078974

PATIENT
  Sex: Male

DRUGS (1)
  1. REBIF [Suspect]
     Indication: RELAPSING-REMITTING MULTIPLE SCLEROSIS
     Dates: start: 20101202

REACTIONS (6)
  - SUICIDAL IDEATION [None]
  - MOOD ALTERED [None]
  - DEPRESSED MOOD [None]
  - MEMORY IMPAIRMENT [None]
  - SOMNOLENCE [None]
  - INJECTION SITE HAEMATOMA [None]
